FAERS Safety Report 8368855-6 (Version None)
Quarter: 2012Q2

REPORT INFORMATION
  Report Type: 
  Country: None (occurrence: None)
  Receive Date: 20120516
  Receipt Date: 20120514
  Transmission Date: 20120825
  Serious: Yes (Hospitalization, Other)
  Sender: FDA-Public Use
  Company Number: ADR-2011-10600

PATIENT
  Age: 9 Year
  Sex: Female

DRUGS (1)
  1. LIORESAL [Suspect]
     Indication: MUSCLE SPASTICITY
     Dosage: 317.4 MCG, DAILY, INTRATHECAL
     Route: 037

REACTIONS (8)
  - DRUG WITHDRAWAL SYNDROME [None]
  - CLONUS [None]
  - CONDITION AGGRAVATED [None]
  - MUSCLE SPASMS [None]
  - MUSCLE SPASTICITY [None]
  - IRRITABILITY [None]
  - ADHESION [None]
  - DEVICE MALFUNCTION [None]
